FAERS Safety Report 26202620 (Version 1)
Quarter: 2025Q4

REPORT INFORMATION
  Report Type: Spontaneous
  Country: US (occurrence: None)
  Receive Date: 20251226
  Receipt Date: 20251226
  Transmission Date: 20260117
  Serious: Yes (Death)
  Sender: CHIESI
  Company Number: US-CHIESI-2025CHF09330

PATIENT
  Sex: Female
  Weight: 81.647 kg

DRUGS (2)
  1. FERRIPROX [Suspect]
     Active Substance: DEFERIPRONE
     Indication: Iron metabolism disorder
     Dosage: 1000 MILLIGRAM, BID
     Route: 061
     Dates: start: 20250313, end: 20251106
  2. FERRIPROX [Suspect]
     Active Substance: DEFERIPRONE
     Indication: Chronic kidney disease

REACTIONS (2)
  - Death [Fatal]
  - Off label use [Recovered/Resolved]

NARRATIVE: CASE EVENT DATE: 20250101
